FAERS Safety Report 10451046 (Version 1)
Quarter: 2014Q3

REPORT INFORMATION
  Report Type: Spontaneous
  Country: IT (occurrence: IT)
  Receive Date: 20140912
  Receipt Date: 20140912
  Transmission Date: 20150326
  Serious: Yes (Hospitalization)
  Sender: FDA-Public Use
  Company Number: PHHY2014IT112359

PATIENT
  Sex: Female

DRUGS (2)
  1. ALPRAZOLAM. [Suspect]
     Active Substance: ALPRAZOLAM
     Indication: DRUG ABUSE
     Dosage: 4.75 MG, ONCE/SINGLE
     Route: 048
     Dates: start: 20140830, end: 20140830
  2. CETIRIZINE [Suspect]
     Active Substance: CETIRIZINE HYDROCHLORIDE
     Indication: DRUG ABUSE
     Dosage: 14 DF, ONCE/SINGLE
     Route: 048
     Dates: start: 20140830, end: 20140830

REACTIONS (4)
  - Drug abuse [Recovered/Resolved]
  - Somnolence [Recovered/Resolved]
  - Bradykinesia [Recovered/Resolved]
  - Bradyphrenia [Recovered/Resolved]

NARRATIVE: CASE EVENT DATE: 20140830
